FAERS Safety Report 5116185-8 (Version None)
Quarter: 2006Q3

REPORT INFORMATION
  Report Type: 
  Country: None (occurrence: None)
  Receive Date: 20060927
  Receipt Date: 20060628
  Transmission Date: 20061208
  Serious: No
  Sender: FDA-Public Use
  Company Number: US-BRISTOL-MYERS SQUIBB COMPANY-13455449

PATIENT
  Age: 42 Year
  Sex: Male

DRUGS (2)
  1. DEFINITY [Suspect]
     Route: 042
  2. BENICAR [Concomitant]

REACTIONS (2)
  - PRURITUS [None]
  - RASH [None]
